FAERS Safety Report 13988351 (Version 7)
Quarter: 2018Q1

REPORT INFORMATION
  Report Type: Spontaneous
  Country: US (occurrence: US)
  Receive Date: 20170919
  Receipt Date: 20180103
  Transmission Date: 20180508
  Serious: Yes (Other)
  Sender: FDA-Public Use
  Company Number: US-PFIZER INC-2017404110

PATIENT
  Age: 64 Year
  Sex: Female

DRUGS (2)
  1. PREDNISONE. [Concomitant]
     Active Substance: PREDNISONE
     Dosage: UNK
  2. XELJANZ XR [Suspect]
     Active Substance: TOFACITINIB CITRATE
     Dosage: 11 MG, UNK

REACTIONS (14)
  - Nasal congestion [Unknown]
  - Myalgia [Not Recovered/Not Resolved]
  - Road traffic accident [Unknown]
  - Muscle spasms [Unknown]
  - Insomnia [Unknown]
  - Headache [Unknown]
  - Weight increased [Unknown]
  - Dyspepsia [Unknown]
  - Rhinorrhoea [Unknown]
  - Hyperhidrosis [Unknown]
  - Upper limb fracture [Unknown]
  - Oropharyngeal pain [Unknown]
  - Pyrexia [Unknown]
  - Gastrooesophageal reflux disease [Unknown]

NARRATIVE: CASE EVENT DATE: 201708
